FAERS Safety Report 17692558 (Version 2)
Quarter: 2020Q3

REPORT INFORMATION
  Report Type: Spontaneous
  Country: US (occurrence: US)
  Receive Date: 20200422
  Receipt Date: 20200811
  Transmission Date: 20201102
  Serious: Yes (Other)
  Sender: FDA-Public Use
  Company Number: US-VIIV HEALTHCARE LIMITED-US2020AMR068404

PATIENT
  Sex: Male

DRUGS (1)
  1. DOVATO [Suspect]
     Active Substance: DOLUTEGRAVIR SODIUM\LAMIVUDINE
     Indication: HIV INFECTION
     Dosage: UNK
     Route: 065
     Dates: start: 202002

REACTIONS (8)
  - Condition aggravated [Unknown]
  - Product dose omission issue [Unknown]
  - Depressed mood [Unknown]
  - Stress [Unknown]
  - Mental disorder [Unknown]
  - Dizziness [Unknown]
  - Treatment noncompliance [Unknown]
  - Blood HIV RNA increased [Unknown]
